FAERS Safety Report 19856896 (Version 1)
Quarter: 2021Q3

REPORT INFORMATION
  Report Type: Spontaneous
  Country: CA (occurrence: CA)
  Receive Date: 20210920
  Receipt Date: 20210920
  Transmission Date: 20211014
  Serious: Yes (Other)
  Sender: FDA-Public Use
  Company Number: CA-SAMSUNG BIOEPIS-SB-2021-21636

PATIENT
  Age: 78 Year
  Sex: Female
  Weight: 58 kg

DRUGS (1)
  1. RENFLEXIS [Suspect]
     Active Substance: INFLIXIMAB-ABDA
     Indication: CROHN^S DISEASE
     Dosage: UNKNOWN
     Route: 042

REACTIONS (5)
  - Feeding disorder [Not Recovered/Not Resolved]
  - Tremor [Not Recovered/Not Resolved]
  - Neurological symptom [Not Recovered/Not Resolved]
  - Myalgia [Not Recovered/Not Resolved]
  - Product substitution issue [Not Recovered/Not Resolved]
